FAERS Safety Report 4416109-2 (Version None)
Quarter: 2004Q3

REPORT INFORMATION
  Report Type: 
  Country: None (occurrence: None)
  Receive Date: 20040730
  Receipt Date: 20040716
  Transmission Date: 20050211
  Serious: Yes (Death, Life-Threatening, Hospitalization)
  Sender: FDA-Public Use
  Company Number: 2004AP03400

PATIENT
  Age: 50 Year
  Sex: Male

DRUGS (6)
  1. SEROQUEL [Suspect]
     Indication: SCHIZOPHRENIA
     Dosage: 200 MG DAILY PO
     Route: 048
     Dates: start: 20040512, end: 20040516
  2. SELENASE [Suspect]
     Dosage: 3 MG BID PO
     Route: 048
     Dates: start: 20030730, end: 20040516
  3. LULLAN [Suspect]
     Dosage: 16 MG DAILY PO
     Route: 048
     Dates: start: 20021113, end: 20030805
  4. LULLAN [Suspect]
     Dosage: 32 MG DAILY PO
     Route: 048
     Dates: start: 20030806, end: 20040511
  5. LULLAN [Suspect]
     Dosage: 8 MG BID PO
     Route: 048
     Dates: start: 20040512, end: 20040516
  6. KYUFU [Suspect]
     Indication: UPPER RESPIRATORY TRACT INFLAMMATION
     Dates: start: 20040512, end: 20040516

REACTIONS (10)
  - DISSEMINATED INTRAVASCULAR COAGULATION [None]
  - HAEMODIALYSIS [None]
  - HAEMOGLOBIN DECREASED [None]
  - HEPATITIS FULMINANT [None]
  - LOSS OF CONSCIOUSNESS [None]
  - NEUROLEPTIC MALIGNANT SYNDROME [None]
  - OVERDOSE [None]
  - RED BLOOD CELL COUNT DECREASED [None]
  - RENAL FAILURE [None]
  - UPPER RESPIRATORY TRACT INFLAMMATION [None]
